FAERS Safety Report 24618873 (Version 3)
Quarter: 2024Q4

REPORT INFORMATION
  Report Type: Spontaneous
  Country: CN (occurrence: CN)
  Receive Date: 20241114
  Receipt Date: 20241120
  Transmission Date: 20250115
  Serious: Yes (Life-Threatening, Other)
  Sender: PFIZER
  Company Number: CN-PFIZER INC-PV202400146998

PATIENT
  Age: 40 Year
  Sex: Male

DRUGS (2)
  1. MEROPENEM [Suspect]
     Active Substance: MEROPENEM
     Indication: Anti-infective therapy
     Dosage: 0.5 G, 3X/DAY
     Route: 042
  2. MEROPENEM [Suspect]
     Active Substance: MEROPENEM
     Dosage: 0.5 G, 2X/DAY
     Route: 041

REACTIONS (3)
  - Leukopenia [Recovered/Resolved]
  - Neutropenia [Recovered/Resolved]
  - Infection [Recovered/Resolved]
